FAERS Safety Report 6172017-0 (Version None)
Quarter: 2009Q2

REPORT INFORMATION
  Report Type: 
  Country: None (occurrence: None)
  Receive Date: 20090428
  Receipt Date: 20090428
  Transmission Date: 20091009
  Serious: Yes (Other)
  Sender: FDA-Public Use
  Company Number: None

PATIENT
  Age: 49 Year
  Sex: Female
  Weight: 89.3586 kg

DRUGS (6)
  1. INVEGA [Suspect]
     Indication: PARANOIA
     Dosage: 1 QD 1QD PO
     Route: 048
     Dates: start: 20090413, end: 20090427
  2. XANAX [Concomitant]
  3. ZOLOFT [Concomitant]
  4. LITHIUM CARBONATE [Concomitant]
  5. DESYREL [Concomitant]
  6. NEXIUM [Concomitant]

REACTIONS (2)
  - FALL [None]
  - FLUID RETENTION [None]
